FAERS Safety Report 25459179 (Version 1)
Quarter: 2025Q2

REPORT INFORMATION
  Report Type: Spontaneous
  Country: ES (occurrence: ES)
  Receive Date: 20250620
  Receipt Date: 20250620
  Transmission Date: 20250717
  Serious: Yes (Death, Hospitalization)
  Sender: JOHNSON AND JOHNSON
  Company Number: ES-JNJFOC-20250613997

PATIENT

DRUGS (1)
  1. CARVYKTI [Suspect]
     Active Substance: CILTACABTAGENE AUTOLEUCEL
     Indication: Plasma cell myeloma
     Route: 065

REACTIONS (14)
  - Fungal infection [Fatal]
  - Viral infection [Fatal]
  - Bacterial infection [Fatal]
  - Clostridium difficile infection [Fatal]
  - Pseudomonal bacteraemia [Unknown]
  - Mucormycosis [Unknown]
  - Aspergillus infection [Unknown]
  - Systemic candida [Unknown]
  - COVID-19 [Unknown]
  - Influenza [Unknown]
  - Staphylococcal bacteraemia [Unknown]
  - Escherichia bacteraemia [Unknown]
  - Cytokine release syndrome [Unknown]
  - Immune effector cell-associated neurotoxicity syndrome [Unknown]
